FAERS Safety Report 5241140-7 (Version None)
Quarter: 2007Q1

REPORT INFORMATION
  Report Type: 
  Country: None (occurrence: None)
  Receive Date: 20070220
  Receipt Date: 20070207
  Transmission Date: 20070707
  Serious: Yes (Other)
  Sender: FDA-Public Use
  Company Number: CA-JNJFOC-20060405711

PATIENT
  Sex: Female

DRUGS (2)
  1. REMICADE [Suspect]
     Indication: ANKYLOSING SPONDYLITIS
     Route: 042
  2. VELTARO SR [Concomitant]
     Route: 048

REACTIONS (3)
  - HEART RATE IRREGULAR [None]
  - TINNITUS [None]
  - TREMOR [None]
